FAERS Safety Report 24043359 (Version 1)
Quarter: 2024Q3

REPORT INFORMATION
  Report Type: Spontaneous
  Country: US (occurrence: US)
  Receive Date: 20240703
  Receipt Date: 20240703
  Transmission Date: 20241016
  Serious: Yes (Death, Hospitalization)
  Sender: NOVITIUM PHARMA
  Company Number: US-NOVITIUMPHARMA-2024USNVP01142

PATIENT
  Age: 60 Year
  Sex: Female

DRUGS (9)
  1. LACOSAMIDE [Suspect]
     Active Substance: LACOSAMIDE
     Indication: New onset refractory status epilepticus
  2. CLOBAZAM [Concomitant]
     Active Substance: CLOBAZAM
     Indication: New onset refractory status epilepticus
  3. CENOBAMATE [Concomitant]
     Active Substance: CENOBAMATE
     Indication: New onset refractory status epilepticus
  4. PROPOFOL [Concomitant]
     Active Substance: PROPOFOL
     Indication: New onset refractory status epilepticus
  5. MIDAZOLAM [Concomitant]
     Active Substance: MIDAZOLAM
     Indication: New onset refractory status epilepticus
  6. PHENOBARBITAL [Concomitant]
     Active Substance: PHENOBARBITAL
     Indication: New onset refractory status epilepticus
  7. VALPROIC ACID [Concomitant]
     Active Substance: VALPROIC ACID
     Indication: New onset refractory status epilepticus
  8. FOSPHENYTOIN [Concomitant]
     Active Substance: FOSPHENYTOIN
     Indication: New onset refractory status epilepticus
  9. BRIVARACETAM [Concomitant]
     Active Substance: BRIVARACETAM
     Indication: New onset refractory status epilepticus

REACTIONS (1)
  - Drug ineffective [Fatal]
